FAERS Safety Report 6741171-1 (Version None)
Quarter: 2010Q2

REPORT INFORMATION
  Report Type: 
  Country: None (occurrence: None)
  Receive Date: 20100524
  Receipt Date: 20100510
  Transmission Date: 20101027
  Serious: Yes (Death, Hospitalization)
  Sender: FDA-Public Use
  Company Number: 2009AC000202

PATIENT
  Age: 71 Year
  Sex: Female

DRUGS (56)
  1. DIGOXIN [Suspect]
     Indication: CARDIAC DISORDER
     Dosage: 0.125 MG; QD; PO
     Route: 048
     Dates: start: 20020224, end: 20071101
  2. DIGOXIN [Suspect]
     Dosage: 0.250 MG; PO
     Route: 048
     Dates: start: 20050101
  3. DIGOXIN [Suspect]
     Dosage: 125 MCG; IV
     Route: 042
     Dates: start: 20071001, end: 20071101
  4. BUMETANIDE [Concomitant]
  5. WARFARIN SODIUM [Concomitant]
  6. CYCLOBENZAPRINE [Concomitant]
  7. CLORAZEPATE DIPOTASSIUM [Concomitant]
  8. JANUVIA [Concomitant]
  9. COMBIVENT [Concomitant]
  10. CARVEDILOL [Concomitant]
  11. METOLAZONE [Concomitant]
  12. CARTIA XT [Concomitant]
  13. TRAMADOL HCL [Concomitant]
  14. SIMVASTATIN [Concomitant]
  15. PREDNISONE [Concomitant]
  16. HYDROXYZINE HCL [Concomitant]
  17. NEXIUM [Concomitant]
  18. POTASSIUM CHLORIDE [Concomitant]
  19. XOPENEX [Concomitant]
  20. LANTUS [Concomitant]
  21. NITROFURANTOIN-MACRO [Concomitant]
  22. ALPHAGAN [Concomitant]
  23. LISINOPRIL [Concomitant]
  24. VIGAMOX [Concomitant]
  25. IPRATROPIUM [Concomitant]
  26. CLINDAMYCIN HCL [Concomitant]
  27. HUMALOG [Concomitant]
  28. CEFADROXIL [Concomitant]
  29. FUROSEMIDE [Concomitant]
  30. CLOPIDOGREL BISULFATE [Concomitant]
  31. TOPROL-XL [Concomitant]
  32. CARDIZEM [Concomitant]
  33. BUMEX [Concomitant]
  34. COUMADIN [Concomitant]
  35. POTASSIUM [Concomitant]
  36. ................... [Concomitant]
  37. .............. [Concomitant]
  38. CARDIZEM [Concomitant]
  39. ................. [Concomitant]
  40. COREG [Concomitant]
  41. INSULIN [Concomitant]
  42. CORDARONE [Concomitant]
  43. PROTONIX [Concomitant]
  44. GLUCOPHAGE [Concomitant]
  45. WELLBUTRIN [Concomitant]
  46. LOPRESSOR [Concomitant]
  47. MAGNESIUM OXIDE [Concomitant]
  48. AVANDIA [Concomitant]
  49. COLACE [Concomitant]
  50. PREVACID [Concomitant]
  51. ASPIRIN [Concomitant]
  52. AVELOX [Concomitant]
  53. REVATIO [Concomitant]
  54. HEPARIN [Concomitant]
  55. DIAMOX SRC [Concomitant]
  56. ....................... [Concomitant]

REACTIONS (36)
  - ANAEMIA [None]
  - ANXIETY [None]
  - ATRIAL FIBRILLATION [None]
  - BLOOD SODIUM DECREASED [None]
  - CARDIAC FAILURE CONGESTIVE [None]
  - CARDIO-RESPIRATORY ARREST [None]
  - CARDIOACTIVE DRUG LEVEL ABOVE THERAPEUTIC [None]
  - CARDIOGENIC SHOCK [None]
  - CEREBROVASCULAR ACCIDENT [None]
  - CHRONIC OBSTRUCTIVE PULMONARY DISEASE [None]
  - CONDITION AGGRAVATED [None]
  - CONFUSIONAL STATE [None]
  - DEEP VEIN THROMBOSIS [None]
  - DEHYDRATION [None]
  - DIABETES MELLITUS INADEQUATE CONTROL [None]
  - DILATATION VENTRICULAR [None]
  - FEELING ABNORMAL [None]
  - FLUID OVERLOAD [None]
  - GASTRIC ULCER HAEMORRHAGE [None]
  - HALLUCINATION [None]
  - HYPERCAPNIA [None]
  - HYPERTENSION [None]
  - HYPOKALAEMIA [None]
  - MENTAL STATUS CHANGES [None]
  - MUSCULOSKELETAL PAIN [None]
  - MYOCARDIAL INFARCTION [None]
  - OBSTRUCTIVE AIRWAYS DISORDER [None]
  - OEDEMA [None]
  - PERIPHERAL VASCULAR DISORDER [None]
  - PNEUMONIA HAEMOPHILUS [None]
  - PULMONARY HYPERTENSION [None]
  - RENAL FAILURE ACUTE [None]
  - RESPIRATORY FAILURE [None]
  - SKIN ULCER [None]
  - THROMBOCYTOPENIA [None]
  - URINARY TRACT INFECTION [None]
